FAERS Safety Report 6732092-9 (Version None)
Quarter: 2010Q2

REPORT INFORMATION
  Report Type: 
  Country: None (occurrence: None)
  Receive Date: 20100519
  Receipt Date: 20100514
  Transmission Date: 20101027
  Serious: Yes (Other)
  Sender: FDA-Public Use
  Company Number: PT-BRISTOL-MYERS SQUIBB COMPANY-15108475

PATIENT
  Age: 47 Year
  Sex: Female

DRUGS (3)
  1. REYATAZ [Suspect]
     Dosage: STARTED ABOUT 4 YRS AGO.
  2. RITONAVIR [Suspect]
     Dosage: STARTED ABOUT 4 YRS AGO.
  3. TENOFOVIR DF + EMTRICITABINE [Suspect]
     Dosage: 1 DF= 200+245 MG; STARTED ABOUT 4 YRS AGO.

REACTIONS (1)
  - OSTEOPENIA [None]
